FAERS Safety Report 21692567 (Version 1)
Quarter: 2022Q4

REPORT INFORMATION
  Report Type: Report from Study
  Country: US (occurrence: US)
  Receive Date: 20221207
  Receipt Date: 20221207
  Transmission Date: 20230112
  Serious: No
  Sender: FDA-Public Use
  Company Number: US-ABBVIE-4205834

PATIENT
  Age: 31 Year
  Sex: Male

DRUGS (1)
  1. SKYRIZI [Suspect]
     Active Substance: RISANKIZUMAB-RZAA
     Indication: Psoriasis
     Route: 058
     Dates: start: 20221111

REACTIONS (4)
  - Upper respiratory tract infection [Recovering/Resolving]
  - Malaise [Recovering/Resolving]
  - COVID-19 [Unknown]
  - Chest pain [Unknown]

NARRATIVE: CASE EVENT DATE: 20221101
